FAERS Safety Report 9119486 (Version 2)
Quarter: 2013Q2

REPORT INFORMATION
  Report Type: Spontaneous
  Country: US (occurrence: US)
  Receive Date: 20130226
  Receipt Date: 20130516
  Transmission Date: 20140414
  Serious: Yes (Other)
  Sender: FDA-Public Use
  Company Number: US-009507513-1302USA009491

PATIENT
  Age: 51 Year
  Sex: Male
  Weight: 117.91 kg

DRUGS (4)
  1. DEXAMETHASONE [Suspect]
     Indication: PAIN
     Dosage: ONCE EVERY ALTERNATE DAY
     Dates: start: 20060915, end: 20061005
  2. TRAMADOL HYDROCHLORIDE [Concomitant]
  3. MARCAINE [Concomitant]
  4. MORPHINE [Concomitant]

REACTIONS (5)
  - Hallucination [Recovered/Resolved]
  - Psychotic disorder [Recovered/Resolved]
  - Delusion [Recovered/Resolved]
  - Post-traumatic stress disorder [Recovered/Resolved]
  - Amnesia [Recovered/Resolved]
